FAERS Safety Report 4924634-0 (Version None)
Quarter: 2006Q1

REPORT INFORMATION
  Report Type: 
  Country: None (occurrence: None)
  Receive Date: 20060222
  Receipt Date: 20060209
  Transmission Date: 20060701
  Serious: No
  Sender: FDA-Public Use
  Company Number: 2005-135788-NL

PATIENT
  Age: 60 Year
  Sex: Female

DRUGS (14)
  1. PANCREATIN TRIPLE STRENGTH CAP [Suspect]
     Indication: PANCREATIC DISORDER
     Dosage: DF
     Dates: start: 19961201
  2. PANCREALIPASE [Suspect]
     Dosage: DF
  3. CISAPRIDE [Concomitant]
  4. RAMIPRIL [Concomitant]
  5. VERAPAMIL [Concomitant]
  6. LEVOTHYROXINE SODIUM [Concomitant]
  7. POTASSIUM CHLORIDE [Concomitant]
  8. DOCUSATE SODIUM [Concomitant]
  9. CALCIUM CARBONATE [Concomitant]
  10. CENTRUM [Concomitant]
  11. BENADRYL [Concomitant]
  12. ERGOCALCIFEROL [Concomitant]
  13. FLUTICASONE PROPIONATE [Concomitant]
  14. SALBUTAMOL [Concomitant]

REACTIONS (3)
  - DIZZINESS [None]
  - HYPOGLYCAEMIA [None]
  - VOMITING [None]
